FAERS Safety Report 6422010-5 (Version None)
Quarter: 2009Q4

REPORT INFORMATION
  Report Type: 
  Country: None (occurrence: None)
  Receive Date: 20091030
  Receipt Date: 20091022
  Transmission Date: 20100525
  Serious: Yes (Other)
  Sender: FDA-Public Use
  Company Number: US-ELI_LILLY_AND_COMPANY-US200910001647

PATIENT
  Age: 57 Year
  Sex: Female

DRUGS (11)
  1. GEMZAR [Suspect]
     Indication: NON-SMALL CELL LUNG CANCER METASTATIC
     Dosage: 2125 MG, DAYS 1 AND 8 EVERY 3 WEEKS
     Route: 042
     Dates: start: 20090731
  2. ALIMTA [Suspect]
     Indication: NON-SMALL CELL LUNG CANCER METASTATIC
     Dosage: 850 MG, EVERY 21 DAYS
  3. FOLIC ACID [Concomitant]
     Dosage: 1 MG, DAILY (1/D)
  4. DEXAMETHASONE [Concomitant]
  5. MULTI-VITAMIN [Concomitant]
  6. AVAPRO [Concomitant]
     Dosage: 75 MG, DAILY (1/D)
  7. ASPIRIN [Concomitant]
     Dosage: 81 MG, DAILY (1/D)
  8. RANITIDINE [Concomitant]
     Dosage: 300 MG, DAILY (1/D)
  9. LOVASTATIN [Concomitant]
     Dosage: 40 MG, DAILY (1/D)
  10. BENADRYL [Concomitant]
     Dosage: 50 MG, 4/D
  11. ZOFRAN [Concomitant]
     Dosage: UNK, AS NEEDED

REACTIONS (1)
  - PERIORBITAL OEDEMA [None]
